FAERS Safety Report 6741016-X (Version None)
Quarter: 2010Q2

REPORT INFORMATION
  Report Type: 
  Country: None (occurrence: None)
  Receive Date: 20100526
  Receipt Date: 20100517
  Transmission Date: 20101027
  Serious: Yes (Death, Disabling, Other)
  Sender: FDA-Public Use
  Company Number: US-ASTRAZENECA-2007UW08204

PATIENT
  Age: 66 Year
  Sex: Female

DRUGS (4)
  1. SEROQUEL [Suspect]
     Route: 048
     Dates: start: 20001001
  2. SEROQUEL [Suspect]
     Route: 048
     Dates: start: 20031101
  3. SEROQUEL [Suspect]
     Route: 048
     Dates: start: 20040601
  4. SEROQUEL [Suspect]
     Route: 048
     Dates: start: 20040601

REACTIONS (7)
  - DEATH [None]
  - DIABETIC NEPHROPATHY [None]
  - DIABETIC NEUROPATHY [None]
  - DIABETIC RETINOPATHY [None]
  - DIABETIC VASCULAR DISORDER [None]
  - TYPE 1 DIABETES MELLITUS [None]
  - TYPE 2 DIABETES MELLITUS [None]
